FAERS Safety Report 15241064 (Version 3)
Quarter: 2018Q3

REPORT INFORMATION
  Report Type: Spontaneous
  Country: BR (occurrence: BR)
  Receive Date: 20180804
  Receipt Date: 20180906
  Transmission Date: 20181010
  Serious: Yes (Other)
  Sender: FDA-Public Use
  Company Number: BR-SA-2018SA210014

PATIENT

DRUGS (1)
  1. LEMTRADA [Suspect]
     Active Substance: ALEMTUZUMAB
     Dosage: UNK UNK, UNK
     Route: 065

REACTIONS (12)
  - Dyspnoea exertional [Unknown]
  - Tendonitis [Unknown]
  - Urinary tract infection [Recovered/Resolved]
  - Cold sweat [Unknown]
  - Leukopenia [Unknown]
  - Neurogenic bladder [Unknown]
  - Bradycardia [Unknown]
  - Neutropenia [Unknown]
  - Hypertension [Unknown]
  - Pain [Unknown]
  - Immunodeficiency [Unknown]
  - Infection [Unknown]

NARRATIVE: CASE EVENT DATE: 201005
